FAERS Safety Report 23088950 (Version 1)
Quarter: 2023Q4

REPORT INFORMATION
  Report Type: Spontaneous
  Country: US (occurrence: None)
  Receive Date: 20231019
  Receipt Date: 20231019
  Transmission Date: 20240109
  Serious: Yes (Hospitalization)
  Sender: FDA-Public Use
  Company Number: None

PATIENT
  Age: 46 Year
  Sex: Male
  Weight: 108.45 kg

DRUGS (1)
  1. OCREVUS [Suspect]
     Active Substance: OCRELIZUMAB
     Indication: Multiple sclerosis
     Dosage: OTHER FREQUENCY : EVERY 6 MONTHS;?
     Route: 042
     Dates: start: 20231019, end: 20231019

REACTIONS (6)
  - Infusion related reaction [None]
  - Cough [None]
  - Chest discomfort [None]
  - Sensation of foreign body [None]
  - Urticaria [None]
  - Wheezing [None]

NARRATIVE: CASE EVENT DATE: 20231019
